FAERS Safety Report 24712995 (Version 1)
Quarter: 2024Q4

REPORT INFORMATION
  Report Type: Spontaneous
  Country: AT (occurrence: AT)
  Receive Date: 20241209
  Receipt Date: 20241209
  Transmission Date: 20250115
  Serious: Yes (Death)
  Sender: DAIICHI
  Company Number: AT-DSJP-DS-2024-112651-AT

PATIENT
  Age: 74 Year
  Sex: Female

DRUGS (1)
  1. ENHERTU [Suspect]
     Active Substance: FAM-TRASTUZUMAB DERUXTECAN-NXKI
     Indication: Non-small cell lung cancer metastatic
     Dosage: UNK
     Route: 065

REACTIONS (2)
  - Lung disorder [Fatal]
  - Pneumonitis [Recovering/Resolving]
